FAERS Safety Report 6040063-3 (Version None)
Quarter: 2009Q1

REPORT INFORMATION
  Report Type: 
  Country: None (occurrence: None)
  Receive Date: 20090116
  Receipt Date: 20071203
  Transmission Date: 20090719
  Serious: No
  Sender: FDA-Public Use
  Company Number: US-BRISTOL-MYERS SQUIBB COMPANY-14001135

PATIENT
  Age: 57 Year
  Sex: Female
  Weight: 53 kg

DRUGS (16)
  1. ABILIFY [Suspect]
     Dosage: HAS BEEN TAKING 5-10MG,CURRENT DOSE 10MG.
     Route: 048
  2. LITHIUM [Concomitant]
  3. CLONAZEPAM [Concomitant]
  4. CELEXA [Concomitant]
  5. PROTONIX [Concomitant]
  6. PROCHLORPERAZINE [Concomitant]
  7. VIRAMUNE [Concomitant]
  8. MIDODRINE HCL [Concomitant]
  9. AMITRIPTYLINE HCL [Concomitant]
  10. EMTRIVA [Concomitant]
  11. TRAZODONE HCL [Concomitant]
  12. REQUIP [Concomitant]
  13. TEMAZEPAM [Concomitant]
  14. FENTANYL [Concomitant]
  15. FLUCONAZOLE [Concomitant]
  16. PERCOCET [Concomitant]

REACTIONS (3)
  - LETHARGY [None]
  - MEMORY IMPAIRMENT [None]
  - PERSONALITY DISORDER [None]
